FAERS Safety Report 5341197-9 (Version None)
Quarter: 2007Q2

REPORT INFORMATION
  Report Type: 
  Country: None (occurrence: None)
  Receive Date: 20070405
  Receipt Date: 20061130
  Transmission Date: 20071010
  Serious: No
  Sender: FDA-Public Use
  Company Number: US200611004753

PATIENT
  Sex: Female

DRUGS (2)
  1. CYMBALTA [Suspect]
     Dosage: SEE IMAGE
     Dates: end: 20061118
  2. LEXAPRO /USA/ (ESCITALOPRAM) [Concomitant]

REACTIONS (7)
  - ABNORMAL BEHAVIOUR [None]
  - CHROMATURIA [None]
  - DELUSION OF GRANDEUR [None]
  - FEELING ABNORMAL [None]
  - HALLUCINATION [None]
  - MANIA [None]
  - PARANOIA [None]
